FAERS Safety Report 5358211-7 (Version None)
Quarter: 2007Q2

REPORT INFORMATION
  Report Type: 
  Country: None (occurrence: None)
  Receive Date: 20070530
  Receipt Date: 20061212
  Transmission Date: 20071010
  Serious: Yes (Other)
  Sender: FDA-Public Use
  Company Number: US200603005039

PATIENT
  Age: 46 Year
  Sex: Male
  Weight: 108.8 kg

DRUGS (9)
  1. ZYPREXA [Suspect]
     Indication: PERSONALITY DISORDER
     Dosage: SEE IMAGE
     Dates: end: 20020717
  2. ZYPREXA [Suspect]
     Indication: PERSONALITY DISORDER
     Dosage: SEE IMAGE
     Dates: start: 19970103
  3. RISPERIDONE [Concomitant]
  4. THORAZINE [Concomitant]
  5. HALDOL SOLUTAB [Concomitant]
  6. NAVANE [Concomitant]
  7. SERZONE [Concomitant]
  8. ZOLOFT [Concomitant]
  9. EFFEXOR [Concomitant]

REACTIONS (8)
  - BLOOD CHOLESTEROL INCREASED [None]
  - BLOOD TRIGLYCERIDES INCREASED [None]
  - DIABETES MELLITUS [None]
  - DIABETIC KETOACIDOSIS [None]
  - EMOTIONAL DISTRESS [None]
  - HYPERTENSION [None]
  - METABOLIC DISORDER [None]
  - OBESITY [None]
